FAERS Safety Report 4600687-4 (Version None)
Quarter: 2005Q1

REPORT INFORMATION
  Report Type: 
  Country: None (occurrence: None)
  Receive Date: 20050304
  Receipt Date: 20050218
  Transmission Date: 20050727
  Serious: Yes (Hospitalization)
  Sender: FDA-Public Use
  Company Number: 6013177

PATIENT
  Age: 83 Year
  Sex: Female

DRUGS (3)
  1. LODOZ(TABLET) (HYDROCHLOROTHIAZIDE, BISOPROLOL FUMARATE) [Suspect]
     Route: 048
     Dates: start: 20041203, end: 20041211
  2. LESCOL [Suspect]
     Route: 048
     Dates: start: 20041203, end: 20041211
  3. DILTIAZEM HYDROCHLORIDE [Suspect]
     Dates: start: 20041203, end: 20041211

REACTIONS (6)
  - ERYTHEMA [None]
  - EXANTHEM [None]
  - FACE OEDEMA [None]
  - PURPURA [None]
  - RENAL FAILURE [None]
  - TOXIC SKIN ERUPTION [None]
